FAERS Safety Report 22044798 (Version 1)
Quarter: 2023Q1

REPORT INFORMATION
  Report Type: Spontaneous
  Country: US (occurrence: None)
  Receive Date: 20230227
  Receipt Date: 20230227
  Transmission Date: 20230417
  Serious: Yes (Hospitalization)
  Sender: FDA-Public Use
  Company Number: None

PATIENT

DRUGS (2)
  1. LOVENOX [Suspect]
     Active Substance: ENOXAPARIN SODIUM
  2. HEPARIN [Suspect]
     Active Substance: HEPARIN SODIUM

REACTIONS (2)
  - Wrong technique in product usage process [None]
  - Inappropriate schedule of product administration [None]
